FAERS Safety Report 21104693 (Version 12)
Quarter: 2025Q1

REPORT INFORMATION
  Report Type: Spontaneous
  Country: IN (occurrence: IN)
  Receive Date: 20220720
  Receipt Date: 20250217
  Transmission Date: 20250409
  Serious: Yes (Hospitalization, Other)
  Sender: PFIZER
  Company Number: IN-PFIZER INC-202101580226

PATIENT
  Age: 50 Year
  Sex: Female
  Weight: 67.8 kg

DRUGS (17)
  1. CRIZOTINIB [Suspect]
     Active Substance: CRIZOTINIB
     Indication: Lung adenocarcinoma
     Dosage: 250 MG, 2X/DAY
     Route: 048
     Dates: start: 20210929
  2. CRIZOTINIB [Suspect]
     Active Substance: CRIZOTINIB
     Dosage: 200 MG, 2X/DAY
     Route: 048
     Dates: start: 20221219, end: 20230421
  3. CRIZOTINIB [Suspect]
     Active Substance: CRIZOTINIB
     Dosage: 250 MG, 1X/DAY
     Route: 048
     Dates: start: 202303, end: 20230421
  4. CRIZOTINIB [Suspect]
     Active Substance: CRIZOTINIB
     Dosage: 200 MG, 2X/DAY
     Route: 048
     Dates: start: 20230612
  5. CRIZOTINIB [Suspect]
     Active Substance: CRIZOTINIB
     Dosage: 250 MG, 1X/DAY
     Route: 048
     Dates: start: 20240405
  6. RANITIDINE [Concomitant]
     Active Substance: RANITIDINE
     Dosage: 300 MG, 1X/DAY
  7. TORSEMIDE [Concomitant]
     Active Substance: TORSEMIDE
  8. MEGASTY [Concomitant]
     Dosage: 160 MG, 2X/DAY
  9. METOCLOPRAMIDE HYDROCHLORIDE [Concomitant]
     Active Substance: METOCLOPRAMIDE HYDROCHLORIDE
     Indication: Vomiting
  10. IMODIUM [Concomitant]
     Active Substance: LOPERAMIDE HYDROCHLORIDE
     Indication: Diarrhoea
  11. ALBUTEROL\IPRATROPIUM BROMIDE [Concomitant]
     Active Substance: ALBUTEROL\IPRATROPIUM BROMIDE
  12. PYREGESIC [Concomitant]
     Indication: Pyrexia
  13. PYREGESIC [Concomitant]
     Indication: Pain
  14. TYDOL [PARACETAMOL] [Concomitant]
     Indication: Pain
  15. CREMAFFIN [Concomitant]
  16. FAMOTIDINE [Concomitant]
     Active Substance: FAMOTIDINE
     Dosage: 40  MG, 1X/DAY
  17. LEVOTHYROXINE [Concomitant]
     Active Substance: LEVOTHYROXINE

REACTIONS (31)
  - Abdominal distension [Unknown]
  - Dyspnoea exertional [Unknown]
  - Pyrexia [Unknown]
  - Pulmonary artery thrombosis [Unknown]
  - Pyelonephritis acute [Unknown]
  - Bradycardia [Unknown]
  - Pneumonia [Unknown]
  - Loss of consciousness [Unknown]
  - Electrocardiogram QT prolonged [Unknown]
  - Cardiomegaly [Unknown]
  - Chest discomfort [Unknown]
  - Nodule [Unknown]
  - Groin pain [Unknown]
  - Cardiac disorder [Unknown]
  - Swelling face [Unknown]
  - Blood urea increased [Unknown]
  - Blood creatinine increased [Unknown]
  - Decreased appetite [Unknown]
  - Asthenia [Unknown]
  - Pain [Unknown]
  - Bundle branch block right [Unknown]
  - Anal incontinence [Unknown]
  - Haemoglobin decreased [Unknown]
  - Platelet count decreased [Unknown]
  - Monocyte percentage increased [Unknown]
  - Red blood cell count decreased [Unknown]
  - Haematocrit decreased [Unknown]
  - Blood chloride increased [Unknown]
  - Pulse abnormal [Unknown]
  - Influenza [Unknown]
  - Sacroiliac fracture [Unknown]

NARRATIVE: CASE EVENT DATE: 20211109
